FAERS Safety Report 6346167-X (Version None)
Quarter: 2009Q3

REPORT INFORMATION
  Report Type: 
  Country: None (occurrence: None)
  Receive Date: 20090909
  Receipt Date: 20090828
  Transmission Date: 20100115
  Serious: Yes (Life-Threatening)
  Sender: FDA-Public Use
  Company Number: GB-PFIZER INC-2009260915

PATIENT

DRUGS (7)
  1. PHENYTOIN AND PHENYTOIN SODIUM [Suspect]
     Indication: CONVULSION
     Dosage: 18 MG/KG, UNK
     Route: 042
     Dates: start: 20090814, end: 20090814
  2. ADRENALINE [Concomitant]
     Dosage: UNK
  3. AMOXICILLIN [Concomitant]
     Dosage: UNK
  4. FLUCLOXACILLIN [Concomitant]
     Dosage: UNK
  5. MILRINONE [Concomitant]
     Dosage: UNK
  6. MORPHINE [Concomitant]
     Dosage: UNK
  7. ROCURONIUM BROMIDE [Concomitant]
     Dosage: UNK

REACTIONS (1)
  - HYPOTENSION [None]
